FAERS Safety Report 19187675 (Version 1)
Quarter: 2021Q2

REPORT INFORMATION
  Report Type: Spontaneous
  Country: IN (occurrence: IN)
  Receive Date: 20210428
  Receipt Date: 20210428
  Transmission Date: 20210717
  Serious: Yes (Hospitalization)
  Sender: FDA-Public Use
  Company Number: IN-LUPIN PHARMACEUTICALS INC.-2021-05391

PATIENT
  Age: 21 Year
  Sex: Male

DRUGS (8)
  1. NORMAL SALINE [Concomitant]
     Active Substance: SODIUM CHLORIDE
     Indication: DRUG THERAPY
     Dosage: 250 MILLILITER (FOR 1 HOUR, INFUSION)
     Route: 042
  2. METRONIDAZOLE. [Suspect]
     Active Substance: METRONIDAZOLE
     Indication: PRODUCT USED FOR UNKNOWN INDICATION
     Dosage: 500 MILLIGRAM (STAT)
     Route: 042
  3. DICYCLOMINE [Concomitant]
     Active Substance: DICYCLOMINE HYDROCHLORIDE
     Indication: PRODUCT USED FOR UNKNOWN INDICATION
     Dosage: 8 MILLIGRAM (STAT)
     Route: 042
  4. DEXTROSE 5% AND 0.9% NORMAL SALINE [Concomitant]
     Indication: DRUG THERAPY
     Dosage: 500 MILLILITER (THIRD HOURLY)
     Route: 042
  5. RANITIDINE. [Interacting]
     Active Substance: RANITIDINE
     Indication: PRODUCT USED FOR UNKNOWN INDICATION
     Dosage: 50 MILLIGRAM, BID (12?HOURLY)
     Route: 042
  6. PHENYTOIN SODIUM. [Interacting]
     Active Substance: PHENYTOIN SODIUM
     Dosage: 100 MILLIGRAM (ON THE DAY OF ADMISSION)
     Route: 042
  7. PHENYTOIN SODIUM. [Interacting]
     Active Substance: PHENYTOIN SODIUM
     Indication: GENERALISED TONIC-CLONIC SEIZURE
     Dosage: 400 MILLIGRAM (INTRAVEOUS INFUSION IN NORMAL SALINE (NS) INFUSION FOR 1 HOUR; ON THE DAY OF ADMISSIO
     Route: 042
  8. PHENYTOIN SODIUM. [Interacting]
     Active Substance: PHENYTOIN SODIUM
     Dosage: 100 MILLIGRAM, TID (8 HOURS)
     Route: 042

REACTIONS (2)
  - Drug interaction [Unknown]
  - Toxicity to various agents [Unknown]
